FAERS Safety Report 10231284 (Version 1)
Quarter: 2014Q2

REPORT INFORMATION
  Report Type: Report from Study
  Country: BR (occurrence: BR)
  Receive Date: 20140611
  Receipt Date: 20140611
  Transmission Date: 20141212
  Serious: Yes (Hospitalization)
  Sender: FDA-Public Use
  Company Number: BR-GLAXOSMITHKLINE-A1076647A

PATIENT
  Age: 65 Year
  Sex: Female
  Weight: 56 kg

DRUGS (4)
  1. SERETIDE [Suspect]
     Indication: EMPHYSEMA
     Dosage: 1PUFF TWICE PER DAY
     Route: 065
     Dates: start: 2013, end: 20140604
  2. LOSARTAN [Concomitant]
  3. FUROSEMIDE [Concomitant]
  4. PROPANOLOL [Concomitant]

REACTIONS (4)
  - Respiratory disorder [Unknown]
  - Drug ineffective [Recovered/Resolved]
  - Dyspnoea [Unknown]
  - Off label use [Recovered/Resolved]
